FAERS Safety Report 7263161-5 (Version None)
Quarter: 2011Q1

REPORT INFORMATION
  Report Type: 
  Country: None (occurrence: None)
  Receive Date: 20110120
  Receipt Date: 20110111
  Transmission Date: 20110831
  Serious: Yes (Other)
  Sender: FDA-Public Use
  Company Number: 2011MA000260

PATIENT
  Sex: Female

DRUGS (3)
  1. METOCLOPRAMIDE [Suspect]
     Dosage: PO
     Route: 048
     Dates: start: 19880101, end: 19900101
  2. CON MEDS [Concomitant]
  3. PREV MEDS [Concomitant]

REACTIONS (4)
  - EXTRAPYRAMIDAL DISORDER [None]
  - EMOTIONAL DISORDER [None]
  - TARDIVE DYSKINESIA [None]
  - ECONOMIC PROBLEM [None]
